FAERS Safety Report 8796695 (Version 2)
Quarter: 2012Q4

REPORT INFORMATION
  Report Type: 
  Country: US (occurrence: US)
  Receive Date: 20120919
  Receipt Date: 20121008
  Transmission Date: 20130627
  Serious: Yes (Other)
  Sender: FDA-Public Use
  Company Number: US-CELGENEUS-163-21880-12091206

PATIENT
  Sex: Female
  Weight: 69.01 kg

DRUGS (1)
  1. REVLIMID [Suspect]
     Indication: MULTIPLE MYELOMA
     Dosage: 25 Milligram
     Route: 048
     Dates: start: 20120809

REACTIONS (4)
  - Cyst [Unknown]
  - Rash [Recovered/Resolved]
  - Muscle spasms [Recovered/Resolved]
  - Vision blurred [Unknown]
